FAERS Safety Report 6257775-9 (Version None)
Quarter: 2009Q3

REPORT INFORMATION
  Report Type: 
  Country: None (occurrence: None)
  Receive Date: 20090702
  Receipt Date: 20090622
  Transmission Date: 20100115
  Serious: Yes (Other)
  Sender: FDA-Public Use
  Company Number: 2009EU002510

PATIENT
  Age: 30 Year
  Sex: Female
  Weight: 92 kg

DRUGS (3)
  1. SOLIFENACIN        (SOLIFENACIN) [Suspect]
     Indication: HYPERTONIC BLADDER
     Dosage: 5 MG, ORAL
     Route: 048
     Dates: start: 20090420, end: 20090422
  2. BECLOMETASONE        (BECLOMETASONE) INHALATION [Concomitant]
  3. VENTOLIN [Concomitant]

REACTIONS (4)
  - ANAPHYLACTIC REACTION [None]
  - RASH GENERALISED [None]
  - SWELLING FACE [None]
  - URTICARIA [None]
